FAERS Safety Report 10443078 (Version 3)
Quarter: 2014Q4

REPORT INFORMATION
  Report Type: Spontaneous
  Country: JP (occurrence: JP)
  Receive Date: 20140909
  Receipt Date: 20141203
  Transmission Date: 20150528
  Serious: Yes (Hospitalization, Other)
  Sender: FDA-Public Use
  Company Number: JP-009507513-1409JPN002208

PATIENT
  Age: 25 Year
  Sex: Male
  Weight: 63 kg

DRUGS (5)
  1. CLARITIN [Suspect]
     Active Substance: LORATADINE
     Dosage: DAILY DOSAGE UNKNOWN
     Route: 048
     Dates: start: 2014, end: 20140828
  2. CALONAL [Concomitant]
     Active Substance: ACETAMINOPHEN
     Dosage: 33 TABLETS, QD
     Route: 048
     Dates: start: 20140829, end: 20140829
  3. MELATONIN [Concomitant]
     Active Substance: MELATONIN
     Dosage: ABOUT 30 TABLETS
     Route: 048
     Dates: start: 20140829, end: 20140829
  4. TOFIS [Concomitant]
     Dosage: 2700 MG
     Route: 048
     Dates: start: 20140829, end: 20140829
  5. CLARITIN [Suspect]
     Active Substance: LORATADINE
     Dosage: 80 MG/8 TABLETS, QD
     Route: 048
     Dates: start: 20140829, end: 20140829

REACTIONS (5)
  - Blood bilirubin unconjugated increased [Recovered/Resolved]
  - Suicide attempt [Unknown]
  - Abdominal pain upper [Recovered/Resolved]
  - Toxicity to various agents [Recovered/Resolved]
  - Intentional overdose [Unknown]

NARRATIVE: CASE EVENT DATE: 20140829
